FAERS Safety Report 18095469 (Version 3)
Quarter: 2020Q4

REPORT INFORMATION
  Report Type: Report from Study
  Country: US (occurrence: US)
  Receive Date: 20200730
  Receipt Date: 20201102
  Transmission Date: 20210113
  Serious: Yes (Other)
  Sender: FDA-Public Use
  Company Number: US-MYLANLABS-2020M1053985

PATIENT
  Age: 73 Year
  Sex: Female
  Weight: 122.5 kg

DRUGS (2)
  1. GLATIRAMER ACETATE INJECTION [Suspect]
     Active Substance: GLATIRAMER ACETATE
     Dosage: 40 MILLIGRAM, Q3W
     Route: 058
     Dates: end: 202008
  2. GLATIRAMER ACETATE INJECTION [Suspect]
     Active Substance: GLATIRAMER ACETATE
     Indication: RELAPSING-REMITTING MULTIPLE SCLEROSIS
     Dosage: 40 MILLIGRAM, 3XW
     Route: 058
     Dates: start: 20200601

REACTIONS (8)
  - Fall [Unknown]
  - Muscle spasms [Unknown]
  - Gait inability [Unknown]
  - Injection site pain [Unknown]
  - Polymyalgia rheumatica [Unknown]
  - Injection site haemorrhage [Unknown]
  - Muscular weakness [Unknown]
  - Product dose omission issue [Unknown]

NARRATIVE: CASE EVENT DATE: 20200601
